FAERS Safety Report 8996548 (Version 1)
Quarter: 2013Q1

REPORT INFORMATION
  Report Type: Spontaneous
  Country: US (occurrence: US)
  Receive Date: 20130104
  Receipt Date: 20130104
  Transmission Date: 20140127
  Serious: Yes (Hospitalization, Other)
  Sender: FDA-Public Use
  Company Number: US-BAYER-2012-136338

PATIENT
  Age: 46 Year
  Sex: Female

DRUGS (9)
  1. YAZ [Suspect]
  2. ATIVAN [Concomitant]
     Indication: CONVULSION
  3. EXCEDRIN MIGRAINE [Concomitant]
     Indication: MIGRAINE
  4. PRILOSEC [Concomitant]
  5. CRESTOR [Concomitant]
  6. ZOLOFT [Concomitant]
  7. DORIPENEM [Concomitant]
     Indication: PYREXIA
  8. MANNITOL [Concomitant]
     Indication: BRAIN OEDEMA
  9. KEPPRA [Concomitant]
     Indication: CONVULSION

REACTIONS (3)
  - Intracranial venous sinus thrombosis [Recovering/Resolving]
  - Thrombophlebitis superficial [None]
  - Cholecystitis [None]
